APPROVED DRUG PRODUCT: TADALAFIL
Active Ingredient: TADALAFIL
Strength: 20MG
Dosage Form/Route: TABLET;ORAL
Application: A213496 | Product #001 | TE Code: AB2
Applicant: SUNSHINE LAKE PHARMA CO LTD
Approved: Nov 23, 2020 | RLD: No | RS: No | Type: RX